FAERS Safety Report 20842410 (Version 1)
Quarter: 2022Q2

REPORT INFORMATION
  Report Type: Spontaneous
  Country: PT (occurrence: PT)
  Receive Date: 20220518
  Receipt Date: 20220518
  Transmission Date: 20220720
  Serious: Yes (Other)
  Sender: FDA-Public Use
  Company Number: PT-ALVOGEN-2022-ALVOGEN-120387

PATIENT
  Age: 76 Year
  Sex: Female

DRUGS (1)
  1. DOXORUBICIN HYDROCHLORIDE [Suspect]
     Active Substance: DOXORUBICIN HYDROCHLORIDE
     Indication: Angiosarcoma recurrent
     Dosage: DOSE REDUCTION OF 50 %
     Dates: start: 20210506

REACTIONS (1)
  - Toxic erythema of chemotherapy [Recovered/Resolved]
